FAERS Safety Report 8429054-2 (Version None)
Quarter: 2012Q2

REPORT INFORMATION
  Report Type: 
  Country: None (occurrence: None)
  Receive Date: 20120612
  Receipt Date: 20120601
  Transmission Date: 20120825
  Serious: Yes (Other)
  Sender: FDA-Public Use
  Company Number: CA-JNJFOC-20120601399

PATIENT
  Sex: Female
  Weight: 75.6 kg

DRUGS (5)
  1. REMICADE [Suspect]
     Indication: RHEUMATOID ARTHRITIS
     Route: 042
     Dates: start: 20110802
  2. REMICADE [Suspect]
     Route: 042
     Dates: start: 20120101, end: 20120117
  3. LEFLUNOMIDE [Concomitant]
     Dosage: DAILY
     Route: 048
  4. CELEBREX [Concomitant]
     Dosage: DAILY
     Route: 048
  5. METHOTREXATE [Concomitant]
     Dosage: WEEKLY
     Route: 048

REACTIONS (3)
  - GASTROOESOPHAGEAL REFLUX DISEASE [None]
  - LARYNGITIS [None]
  - OROPHARYNGEAL PAIN [None]
